FAERS Safety Report 18305174 (Version 1)
Quarter: 2020Q3

REPORT INFORMATION
  Report Type: Spontaneous
  Country: US (occurrence: US)
  Receive Date: 20200923
  Receipt Date: 20200923
  Transmission Date: 20201103
  Serious: No
  Sender: FDA-Public Use
  Company Number: None

PATIENT
  Age: 62 Year
  Sex: Male

DRUGS (2)
  1. BEVACIZUMAB (BEVACIZUMAB 25MG/ML INJ, 4ML) [Suspect]
     Active Substance: BEVACIZUMAB
     Indication: NEOPLASM MALIGNANT
     Dates: start: 20200720, end: 20200720
  2. OXALIPLATIN (OXALIPLATIN 100MG/VIL (PF) INJ) [Suspect]
     Active Substance: OXALIPLATIN
     Indication: NEOPLASM MALIGNANT
     Dates: start: 20200720, end: 20200720

REACTIONS (2)
  - Fatigue [None]
  - Hypophagia [None]

NARRATIVE: CASE EVENT DATE: 20200727
